FAERS Safety Report 15868206 (Version 1)
Quarter: 2019Q1

REPORT INFORMATION
  Report Type: Spontaneous
  Country: US (occurrence: US)
  Receive Date: 20190103
  Receipt Date: 20190103
  Transmission Date: 20190417
  Serious: Yes (Life-Threatening, Disabling)
  Sender: FDA-Public Use
  Company Number: None

PATIENT
  Age: 26 Year
  Sex: Female
  Weight: 63.5 kg

DRUGS (5)
  1. MORPHINE [Suspect]
     Active Substance: MORPHINE
  2. HYDROCODONE [Suspect]
     Active Substance: HYDROCODONE
     Indication: SURGERY
     Dates: start: 19950413
  3. HYDROXYZINE HCL [Concomitant]
     Active Substance: HYDROXYZINE HYDROCHLORIDE
  4. HYDROCODONE [Suspect]
     Active Substance: HYDROCODONE
     Indication: ACCIDENT
     Dates: start: 19950413
  5. VICODIN [Suspect]
     Active Substance: ACETAMINOPHEN\HYDROCODONE BITARTRATE

REACTIONS (2)
  - Drug tolerance increased [None]
  - Withdrawal syndrome [None]

NARRATIVE: CASE EVENT DATE: 20181026
